FAERS Safety Report 18218790 (Version 1)
Quarter: 2020Q3

REPORT INFORMATION
  Report Type: Spontaneous
  Country: US (occurrence: US)
  Receive Date: 20200831
  Receipt Date: 20200831
  Transmission Date: 20201103
  Serious: Yes (Hospitalization)
  Sender: FDA-Public Use
  Company Number: None

PATIENT
  Age: 33 Year
  Sex: Male
  Weight: 89.36 kg

DRUGS (1)
  1. DOXYCYCLINE (DOXYCYCLINE MONOHYDRATE 100MG TAB) [Suspect]
     Active Substance: DOXYCYCLINE
     Indication: DYSURIA
     Route: 048
     Dates: start: 20150717, end: 20150719

REACTIONS (5)
  - Seizure [None]
  - Pain [None]
  - Genital pain [None]
  - Penile burning sensation [None]
  - Loss of consciousness [None]

NARRATIVE: CASE EVENT DATE: 20150718
